FAERS Safety Report 24288075 (Version 1)
Quarter: 2024Q3

REPORT INFORMATION
  Report Type: Report from Study
  Country: US (occurrence: US)
  Receive Date: 20240905
  Receipt Date: 20240905
  Transmission Date: 20241016
  Serious: Yes (Other)
  Sender: HLS THERAPEUTICS
  Company Number: US-HLS-202401077

PATIENT
  Age: 13 Year
  Sex: Female

DRUGS (4)
  1. CLOZARIL [Suspect]
     Active Substance: CLOZAPINE
     Indication: Product used for unknown indication
     Dosage: 100 MG / ONE TAB EVERY MORNING AND 3 TABLETS EVERY BEDTIME
     Route: 048
  2. SEROQUEL [Concomitant]
     Active Substance: QUETIAPINE FUMARATE
     Indication: Agitation
     Dosage: 100 MG ORAL TABLETS
     Route: 065
  3. KLONOPIN [Concomitant]
     Active Substance: CLONAZEPAM
     Indication: Product used for unknown indication
     Dosage: 1 TAB BY MOUTH TWICE DAILY
     Route: 048
  4. GUANFACINE [Concomitant]
     Active Substance: GUANFACINE
     Indication: Product used for unknown indication
     Dosage: 1 MG ORAL TABLET / 1 TAB IN THE MORNING AND 1 TAB IN THE EVENING 5 PM
     Route: 048

REACTIONS (18)
  - Akathisia [Unknown]
  - Alanine aminotransferase increased [Unknown]
  - Anhedonia [Unknown]
  - Anxiety [Unknown]
  - Attention deficit hyperactivity disorder [Not Recovered/Not Resolved]
  - Autism spectrum disorder [Not Recovered/Not Resolved]
  - Blood cholesterol increased [Unknown]
  - Daydreaming [Unknown]
  - Depression [Unknown]
  - Blood glucose increased [Unknown]
  - Aggression [Unknown]
  - Irritability [Unknown]
  - Low density lipoprotein increased [Unknown]
  - Product dose omission issue [Unknown]
  - Non-high-density lipoprotein cholesterol increased [Unknown]
  - Off label use [Unknown]
  - Blood prolactin increased [Unknown]
  - White blood cell count increased [Unknown]

NARRATIVE: CASE EVENT DATE: 20240528
